FAERS Safety Report 19013813 (Version 1)
Quarter: 2021Q1

REPORT INFORMATION
  Report Type: Report from Study
  Country: None (occurrence: ZA)
  Receive Date: 20210315
  Receipt Date: 20210315
  Transmission Date: 20210420
  Serious: Yes (Hospitalization, Other)
  Sender: FDA-Public Use
  Company Number: ZA-ABBVIE-21K-143-3810732-00

PATIENT
  Age: 55 Year
  Sex: Female

DRUGS (2)
  1. METHOTREXATE. [Concomitant]
     Active Substance: METHOTREXATE
     Indication: INFLAMMATION
  2. HUMIRA [Suspect]
     Active Substance: ADALIMUMAB
     Indication: ANKYLOSING SPONDYLITIS
     Route: 058
     Dates: start: 20111210, end: 2013

REACTIONS (27)
  - Inflammation [Unknown]
  - Peripheral swelling [Unknown]
  - Musculoskeletal chest pain [Unknown]
  - Asthenia [Unknown]
  - Joint effusion [Unknown]
  - Arthralgia [Unknown]
  - Suicidal ideation [Unknown]
  - Pain in extremity [Unknown]
  - Ocular hyperaemia [Unknown]
  - Depressed mood [Unknown]
  - Synovial cyst [Unknown]
  - Mass [Unknown]
  - Gastrointestinal disorder [Unknown]
  - Muscle spasms [Unknown]
  - Ankylosing spondylitis [Unknown]
  - Back pain [Unknown]
  - Vision blurred [Unknown]
  - Anxiety [Unknown]
  - Stress [Unknown]
  - Impaired quality of life [Unknown]
  - Diarrhoea [Unknown]
  - Loss of personal independence in daily activities [Unknown]
  - Quality of life decreased [Unknown]
  - Depression suicidal [Unknown]
  - Mobility decreased [Unknown]
  - Peptic ulcer [Unknown]
  - Joint swelling [Unknown]

NARRATIVE: CASE EVENT DATE: 202006
